FAERS Safety Report 17715502 (Version 1)
Quarter: 2020Q2

REPORT INFORMATION
  Report Type: Spontaneous
  Country: CN (occurrence: CN)
  Receive Date: 20200427
  Receipt Date: 20200427
  Transmission Date: 20200714
  Serious: Yes (Hospitalization)
  Sender: FDA-Public Use
  Company Number: CN-PFIZER INC-2020160503

PATIENT
  Age: 61 Year
  Sex: Female
  Weight: 50 kg

DRUGS (4)
  1. SODIUM CHLORIDE. [Concomitant]
     Active Substance: SODIUM CHLORIDE
     Indication: NEOPLASM MALIGNANT
     Dosage: 500 ML, 1X/DAY
     Route: 041
     Dates: start: 20200219, end: 20200219
  2. PARAPLATIN [Suspect]
     Active Substance: CARBOPLATIN
     Indication: NEOPLASM MALIGNANT
     Dosage: 540 MG, 1X/DAY
     Route: 041
     Dates: start: 20200219, end: 20200219
  3. GLUCOSE INJECTION [Concomitant]
     Active Substance: DEXTROSE
     Indication: NEOPLASM MALIGNANT
     Dosage: 500 ML, 1X/DAY
     Route: 041
     Dates: start: 20200219, end: 20200219
  4. ANZATAX (PACLITAXEL) [Suspect]
     Active Substance: PACLITAXEL
     Indication: NEOPLASM MALIGNANT
     Dosage: 240 MG, 1X/DAY
     Route: 041
     Dates: start: 20200219, end: 20200220

REACTIONS (5)
  - Neutrophil count increased [Recovered/Resolved]
  - Bone marrow failure [Recovered/Resolved]
  - Neutrophil count decreased [Recovered/Resolved]
  - Neutrophil percentage increased [Recovered/Resolved]
  - Off label use [Unknown]

NARRATIVE: CASE EVENT DATE: 20200219
